FAERS Safety Report 6420197-1 (Version None)
Quarter: 2009Q4

REPORT INFORMATION
  Report Type: 
  Country: None (occurrence: None)
  Receive Date: 20091029
  Receipt Date: 20091016
  Transmission Date: 20100525
  Serious: Yes (Hospitalization, Other)
  Sender: FDA-Public Use
  Company Number: PHHY2009CA03793

PATIENT
  Sex: Male

DRUGS (10)
  1. CLOZARIL [Suspect]
     Indication: SCHIZOPHRENIA
     Dosage: 400 MG/DAY
     Route: 048
     Dates: start: 20050222
  2. CLOZARIL [Suspect]
     Dosage: 300 MG/DAY
     Route: 048
  3. CLOZARIL [Suspect]
     Dosage: 500 MG, UNK
     Route: 048
  4. NORTRIPTYLINE [Suspect]
  5. ATIVAN [Concomitant]
     Dosage: 0.5 MG
     Dates: start: 20090401
  6. DIVALPROEX SODIUM [Concomitant]
     Dosage: 1200 MG/DAY
  7. COLACE [Concomitant]
  8. LACTULOSE [Concomitant]
  9. SENOKOT [Concomitant]
  10. ESCITALOPRAM [Concomitant]
     Dosage: 15 MG/ DAY

REACTIONS (10)
  - ABDOMINAL ABSCESS [None]
  - COLECTOMY [None]
  - CONSTIPATION [None]
  - GASTROINTESTINAL HYPOMOTILITY [None]
  - HERNIA OBSTRUCTIVE [None]
  - HYPOTENSION [None]
  - INTESTINAL OBSTRUCTION [None]
  - MYOCARDIAL INFARCTION [None]
  - SEPTIC SHOCK [None]
  - SURGERY [None]
